FAERS Safety Report 8995421 (Version 1)
Quarter: 2013Q1

REPORT INFORMATION
  Report Type: Spontaneous
  Country: US (occurrence: US)
  Receive Date: 20130103
  Receipt Date: 20130103
  Transmission Date: 20140127
  Serious: No
  Sender: FDA-Public Use
  Company Number: US-ABBOTT-12P-163-0957143-00

PATIENT
  Sex: Female
  Weight: 63.56 kg

DRUGS (4)
  1. SYNTHROID [Suspect]
     Indication: PRODUCT USED FOR UNKNOWN INDICATION
     Dates: start: 201207
  2. VERAPAMIL [Concomitant]
     Indication: HEART RATE INCREASED
  3. ALLEGRA [Concomitant]
     Indication: HYPERSENSITIVITY
  4. CALCIUM [Concomitant]
     Indication: MINERAL SUPPLEMENTATION

REACTIONS (6)
  - Energy increased [Not Recovered/Not Resolved]
  - Paraesthesia [Not Recovered/Not Resolved]
  - Weight increased [Unknown]
  - Alopecia [Unknown]
  - Spinal pain [Unknown]
  - Tablet physical issue [Unknown]
